FAERS Safety Report 13058103 (Version 1)
Quarter: 2016Q4

REPORT INFORMATION
  Report Type: Spontaneous
  Country: US (occurrence: US)
  Receive Date: 20161223
  Receipt Date: 20161223
  Transmission Date: 20170207
  Serious: No
  Sender: FDA-Public Use
  Company Number: US-DRREDDYS-USA/USA/16/0082710

PATIENT
  Age: 53 Year
  Sex: Male
  Weight: 68.03 kg

DRUGS (3)
  1. CITALOPRAM [Suspect]
     Active Substance: CITALOPRAM HYDROBROMIDE
     Indication: PALPITATIONS
  2. PROPANOLOL [Concomitant]
     Active Substance: PROPRANOLOL HYDROCHLORIDE
     Indication: PRODUCT USED FOR UNKNOWN INDICATION
     Route: 065
  3. CITALOPRAM [Suspect]
     Active Substance: CITALOPRAM HYDROBROMIDE
     Indication: INSOMNIA
     Route: 048

REACTIONS (4)
  - Alopecia [Not Recovered/Not Resolved]
  - Product use issue [Unknown]
  - Weight gain poor [Not Recovered/Not Resolved]
  - Dry mouth [Not Recovered/Not Resolved]
